FAERS Safety Report 5356516-7 (Version None)
Quarter: 2007Q2

REPORT INFORMATION
  Report Type: 
  Country: None (occurrence: None)
  Receive Date: 20070530
  Receipt Date: 20061120
  Transmission Date: 20071010
  Serious: Yes (Hospitalization)
  Sender: FDA-Public Use
  Company Number: US200608005963

PATIENT
  Age: 4 Year
  Sex: Female
  Weight: 20.9 kg

DRUGS (6)
  1. ZYPREXA [Suspect]
     Dosage: 2/5 MG, EACH EVENING
     Dates: start: 20040623, end: 20040722
  2. ZYPREXA [Suspect]
     Dosage: 2/5 MG, EACH EVENING
     Dates: start: 20040722, end: 20051201
  3. QUETIAPINE FUMARATE [Concomitant]
  4. RISPERIDONE [Concomitant]
  5. TRILEPTAL [Concomitant]
  6. DDAVP [Concomitant]

REACTIONS (4)
  - DIABETES MELLITUS [None]
  - HYPERGLYCAEMIA [None]
  - METABOLIC DISORDER [None]
  - WEIGHT INCREASED [None]
